FAERS Safety Report 6434047-0 (Version None)
Quarter: 2009Q4

REPORT INFORMATION
  Report Type: 
  Country: None (occurrence: None)
  Receive Date: 20091110
  Receipt Date: 20091105
  Transmission Date: 20100525
  Serious: Yes (Death, Life-Threatening, Hospitalization)
  Sender: FDA-Public Use
  Company Number: FR-WYE-G04808009

PATIENT
  Sex: Male

DRUGS (12)
  1. TORISEL [Suspect]
     Indication: RENAL CANCER STAGE IV
     Route: 042
     Dates: start: 20090901
  2. KAYEXALATE [Concomitant]
     Dosage: UNKNOWN
  3. ORACILLINE [Concomitant]
     Dosage: UNKNOWN
     Route: 048
  4. INIPOMP [Concomitant]
     Dosage: UNKNOWN
  5. LANTUS [Concomitant]
     Dosage: UNKNOWN
  6. LOXEN [Concomitant]
     Dosage: UNKNOWN
  7. EUPRESSYL [Concomitant]
     Dosage: UNKNOWN
  8. SIMVASTATIN [Concomitant]
     Dosage: UNKNOWN
     Route: 048
  9. APROVEL [Concomitant]
     Dosage: UNKNOWN
     Route: 048
  10. FUROSEMIDE [Concomitant]
     Dosage: UNKNOWN
  11. CORDARONE [Suspect]
     Indication: ATRIAL FIBRILLATION
     Dosage: 200 MG TOTAL DAILY
     Route: 048
  12. PREVISCAN [Concomitant]
     Dosage: UNKNOWN
     Route: 048

REACTIONS (6)
  - ACUTE RESPIRATORY DISTRESS SYNDROME [None]
  - CARDIAC ARREST [None]
  - HEPATIC FAILURE [None]
  - INTERSTITIAL LUNG DISEASE [None]
  - SHOCK [None]
  - SPUTUM PURULENT [None]
